FAERS Safety Report 15478490 (Version 3)
Quarter: 2018Q4

REPORT INFORMATION
  Report Type: Spontaneous
  Country: JP (occurrence: JP)
  Receive Date: 20181009
  Receipt Date: 20181016
  Transmission Date: 20190205
  Serious: Yes (Hospitalization, Other)
  Sender: FDA-Public Use
  Company Number: JP-TEVA-2018-JP-002582J

PATIENT
  Age: 74 Year
  Sex: Female
  Weight: 47 kg

DRUGS (4)
  1. PREDNISOLONE TABLETS 5MG [Suspect]
     Active Substance: PREDNISOLONE
     Indication: EXOPHTHALMOS
     Route: 048
     Dates: start: 2013
  2. PREDNISOLONE TABLETS 5MG [Suspect]
     Active Substance: PREDNISOLONE
     Route: 048
  3. METHYLPREDNISOLONE. [Concomitant]
     Active Substance: METHYLPREDNISOLONE
     Route: 065
  4. PREDNISOLONE TABLETS 5MG [Suspect]
     Active Substance: PREDNISOLONE
     Route: 048
     Dates: start: 2015, end: 201509

REACTIONS (7)
  - Glycosylated haemoglobin increased [Unknown]
  - Basedow^s disease [Recovered/Resolved]
  - Osteonecrosis of jaw [Unknown]
  - Oral candidiasis [Unknown]
  - Cataract [Unknown]
  - Compression fracture [Unknown]
  - Periodontal disease [Unknown]

NARRATIVE: CASE EVENT DATE: 2013
